FAERS Safety Report 9128393 (Version 1)
Quarter: 2013Q1

REPORT INFORMATION
  Report Type: Spontaneous
  Country: US (occurrence: US)
  Receive Date: 20130228
  Receipt Date: 20130228
  Transmission Date: 20140127
  Serious: No
  Sender: FDA-Public Use
  Company Number: US-GLAXOSMITHKLINE-A0977544A

PATIENT
  Age: 47 Year
  Sex: Female

DRUGS (3)
  1. IMITREX [Suspect]
     Indication: HEADACHE
     Route: 058
  2. DEVICE [Suspect]
     Indication: HEADACHE
     Route: 058
  3. IMITREX [Suspect]
     Indication: HEADACHE
     Route: 048

REACTIONS (2)
  - Adverse drug reaction [Unknown]
  - Drug ineffective [Unknown]
